FAERS Safety Report 7998987-3 (Version None)
Quarter: 2011Q4

REPORT INFORMATION
  Report Type: 
  Country: None (occurrence: None)
  Receive Date: 20111221
  Receipt Date: 20111221
  Transmission Date: 20120403
  Serious: Yes (Hospitalization)
  Sender: FDA-Public Use
  Company Number: IT-SANOFI-AVENTIS-2011SA083479

PATIENT
  Age: 79 Year
  Sex: Male

DRUGS (3)
  1. RAMIPRIL [Suspect]
     Route: 048
     Dates: start: 20111101, end: 20111211
  2. LASIX [Suspect]
     Route: 048
     Dates: start: 20111101, end: 20111211
  3. LUVION [Suspect]
     Route: 048
     Dates: start: 20111101, end: 20111211

REACTIONS (3)
  - METABOLIC ALKALOSIS [None]
  - HYPERKALAEMIA [None]
  - HYPONATRAEMIA [None]
